FAERS Safety Report 18375932 (Version 2)
Quarter: 2022Q4

REPORT INFORMATION
  Report Type: Spontaneous
  Country: US (occurrence: US)
  Receive Date: 20201013
  Receipt Date: 20221013
  Transmission Date: 20230112
  Serious: Yes (Other)
  Sender: FDA-Public Use
  Company Number: US-CELLTRION INC.-2020US019387

PATIENT

DRUGS (10)
  1. INFLECTRA [Suspect]
     Active Substance: INFLIXIMAB-DYYB
     Indication: Psoriatic arthropathy
     Dosage: UNK, FIRST INFUSION
     Route: 065
     Dates: start: 20200128
  2. INFLECTRA [Suspect]
     Active Substance: INFLIXIMAB-DYYB
     Dosage: UNK, SECOND INFUSION
     Route: 065
     Dates: start: 20200207
  3. BUSPAR [Concomitant]
     Active Substance: BUSPIRONE HYDROCHLORIDE
     Indication: Anxiety
     Dosage: 7.5 MG BY MOUTH (ORAL) IN MORNING
     Route: 048
     Dates: start: 201911
  4. BUSPAR [Concomitant]
     Active Substance: BUSPIRONE HYDROCHLORIDE
     Dosage: 15 MG BY MOUTH AT NIGHT
     Route: 048
     Dates: start: 201911
  5. LEFLUNOMIDE [Concomitant]
     Active Substance: LEFLUNOMIDE
     Indication: Drug specific antibody
     Dosage: 10 MG (ORAL) BY MOUTH EACH DAY IN 2018 (ON AND OFF FOR THE PAST TWO YEARS)
     Route: 048
     Dates: start: 2018
  6. MELOXICAM [Concomitant]
     Active Substance: MELOXICAM
     Indication: Antiinflammatory therapy
     Dosage: UNK
     Route: 065
     Dates: start: 202001
  7. ACETAMINOPHEN [Concomitant]
     Active Substance: ACETAMINOPHEN
     Indication: Arthritis
     Dosage: 1000 MG, AS NEEDED
     Route: 048
  8. IBUPROFEN [Concomitant]
     Active Substance: IBUPROFEN
     Indication: Arthritis
     Dosage: UNK
     Route: 065
  9. TYLENOL [Concomitant]
     Active Substance: ACETAMINOPHEN
     Indication: Arthritis
     Route: 065
  10. MOTRIN [Concomitant]
     Active Substance: IBUPROFEN
     Indication: Arthritis
     Route: 065

REACTIONS (13)
  - Bradycardia [Recovering/Resolving]
  - Heart rate irregular [Recovering/Resolving]
  - Rash [Recovered/Resolved with Sequelae]
  - Myalgia [Not Recovered/Not Resolved]
  - Pain [Recovering/Resolving]
  - Dizziness [Not Recovered/Not Resolved]
  - Vision blurred [Not Recovered/Not Resolved]
  - Muscle spasms [Not Recovered/Not Resolved]
  - Bone pain [Not Recovered/Not Resolved]
  - Oropharyngeal pain [Recovered/Resolved]
  - Condition aggravated [Not Recovered/Not Resolved]
  - Tachycardia [Recovering/Resolving]
  - Adverse reaction [Not Recovered/Not Resolved]

NARRATIVE: CASE EVENT DATE: 20200207
